FAERS Safety Report 6159412-0 (Version None)
Quarter: 2009Q2

REPORT INFORMATION
  Report Type: 
  Country: None (occurrence: None)
  Receive Date: 20090417
  Receipt Date: 20090410
  Transmission Date: 20091009
  Serious: Yes (Death)
  Sender: FDA-Public Use
  Company Number: GXBR2009US00928

PATIENT
  Sex: Male
  Weight: 137.42 kg

DRUGS (7)
  1. NABUMETONE TABLETS (NGX) [Suspect]
     Indication: ARTHRITIS
     Dosage: 750 MG, BID
     Route: 048
     Dates: start: 20070619
  2. LISINOPRIL/HCTZ TABLETS (NGX) [Suspect]
     Indication: HYPERTENSION
     Dosage: 20/12.5MG QD
     Route: 048
     Dates: start: 20080404
  3. LORATADINE TABLETS (NGX) [Suspect]
     Indication: RHINITIS ALLERGIC
     Dosage: 10 MG, QD
     Route: 048
     Dates: start: 20081031
  4. FLUOXETINE CAPSULES (NGX) [Suspect]
     Indication: DEPRESSION
     Dosage: 40 MG, QD
     Route: 048
     Dates: start: 20071008
  5. OXYMORPHONE [Suspect]
     Indication: RHEUMATOID ARTHRITIS
     Dosage: 30 MG, Q12H
     Dates: start: 20090202
  6. ANDRODERM ^ASTRAZENECA^ [Suspect]
     Indication: HYPOGONADISM
     Dosage: 5 MG, QD
     Route: 062
     Dates: start: 20080609
  7. FOLIC ACID [Suspect]
     Dosage: 1 MG, QD
     Route: 048
     Dates: start: 20070417

REACTIONS (1)
  - DEATH [None]
